FAERS Safety Report 20187708 (Version 1)
Quarter: 2021Q4

REPORT INFORMATION
  Report Type: Spontaneous
  Country: US (occurrence: None)
  Receive Date: 20211215
  Receipt Date: 20211215
  Transmission Date: 20220303
  Serious: Yes (Other)
  Sender: FDA-Public Use
  Company Number: US-Hikma Pharmaceuticals USA Inc.-US-H14001-21-05238

PATIENT
  Age: 14 Month
  Sex: Male

DRUGS (2)
  1. CALCITRIOL [Suspect]
     Active Substance: CALCITRIOL
     Indication: Hyperparathyroidism secondary
     Dosage: UP TO 80 NG/KG DAILY
     Route: 065
  2. PHOSPHORUS [Suspect]
     Active Substance: PHOSPHORUS
     Indication: Hypophosphataemia
     Dosage: UP TO 55 MG/KG
     Route: 048

REACTIONS (6)
  - Abdominal discomfort [Unknown]
  - Malabsorption [Unknown]
  - Hypercalciuria [Unknown]
  - Nephrocalcinosis [Unknown]
  - Blood parathyroid hormone decreased [Unknown]
  - Hypophosphataemia [Recovered/Resolved]
